FAERS Safety Report 4896500-0 (Version None)
Quarter: 2006Q1

REPORT INFORMATION
  Report Type: 
  Country: None (occurrence: None)
  Receive Date: 20060131
  Receipt Date: 20060119
  Transmission Date: 20060701
  Serious: Yes (Other)
  Sender: FDA-Public Use
  Company Number: BR-GLAXOSMITHKLINE-A0591154A

PATIENT
  Age: 47 Year
  Sex: Female
  Weight: 68 kg

DRUGS (4)
  1. AVANDIA [Suspect]
     Dosage: 4MG PER DAY
     Route: 048
     Dates: start: 20051101
  2. INSULIN [Suspect]
     Dosage: 40U TWICE PER DAY
     Route: 065
     Dates: start: 20051101
  3. SIMVASTATIN [Concomitant]
     Dates: start: 20051101
  4. IMIPRAMINE [Concomitant]
     Dates: start: 20060105, end: 20060113

REACTIONS (4)
  - BURNING SENSATION [None]
  - DIABETIC NEUROPATHY [None]
  - GLOSSODYNIA [None]
  - ORAL DISCOMFORT [None]
